FAERS Safety Report 5770383 (Version 2)
Quarter: 2014Q2

REPORT INFORMATION
  Report Type: Spontaneous
  Country: CH (occurrence: CH)
  Receive Date: 20050405
  Receipt Date: 20140407
  Transmission Date: 20141212
  Serious: Yes (Other)
  Sender: FDA-Public Use
  Company Number: CH-ROCHE-394985

PATIENT
  Age: 6 Year
  Sex: Female

DRUGS (2)
  1. CEFTRIAXONE SODIUM [Suspect]
     Indication: MENINGITIS PNEUMOCOCCAL
     Route: 042
  2. FLUCLOXACILLIN [Concomitant]
     Dosage: 150- 200MG/KG PER DAY IN 4 EQUAL INTRAVENOUS DOSES
     Route: 042

REACTIONS (3)
  - Cholelithiasis [Recovered/Resolved]
  - Calculus ureteric [Recovered/Resolved]
  - Pyelocaliectasis [Unknown]
